FAERS Safety Report 20008973 (Version 1)
Quarter: 2021Q4

REPORT INFORMATION
  Report Type: Spontaneous
  Country: US (occurrence: US)
  Receive Date: 20211029
  Receipt Date: 20211029
  Transmission Date: 20220303
  Serious: Yes (Hospitalization)
  Sender: FDA-Public Use
  Company Number: US-DRREDDYS-LIT/USA/21/0142986

PATIENT
  Age: 60 Year
  Sex: Male

DRUGS (19)
  1. FENTANYL CITRATE [Suspect]
     Active Substance: FENTANYL CITRATE
     Indication: Product used for unknown indication
     Route: 042
  2. NALOXONE HYDROCHLORIDE [Suspect]
     Active Substance: NALOXONE HYDROCHLORIDE
     Indication: Depression
  3. NALOXONE HYDROCHLORIDE [Suspect]
     Active Substance: NALOXONE HYDROCHLORIDE
     Dosage: NALOXONE INFUSION AT 0.4 MG/HR
  4. NALOXONE HYDROCHLORIDE [Suspect]
     Active Substance: NALOXONE HYDROCHLORIDE
     Dosage: NALOXONE DOSE WAS TITRATED DOWN, 0.5 TO 0.3MG/HR OVER THE NEXT 48HR.
  5. MORPHINE [Suspect]
     Active Substance: MORPHINE
     Indication: Neck pain
  6. MORPHINE [Suspect]
     Active Substance: MORPHINE
  7. MORPHINE [Suspect]
     Active Substance: MORPHINE
  8. MORPHINE [Suspect]
     Active Substance: MORPHINE
     Dosage: MORPHINE DOSES WERE REDUCED BY 15% EVERY 48-72HOURS
  9. MORPHINE [Suspect]
     Active Substance: MORPHINE
  10. BUPIVACAINE [Suspect]
     Active Substance: BUPIVACAINE
     Indication: Neck pain
  11. BUPIVACAINE [Suspect]
     Active Substance: BUPIVACAINE
  12. BUPIVACAINE [Suspect]
     Active Substance: BUPIVACAINE
  13. BUPIVACAINE [Suspect]
     Active Substance: BUPIVACAINE
  14. BACLOFEN [Suspect]
     Active Substance: BACLOFEN
     Indication: Neck pain
  15. BACLOFEN [Suspect]
     Active Substance: BACLOFEN
  16. BACLOFEN [Suspect]
     Active Substance: BACLOFEN
  17. BACLOFEN [Suspect]
     Active Substance: BACLOFEN
  18. SUFENTANIL [Suspect]
     Active Substance: SUFENTANIL
     Indication: Product used for unknown indication
  19. KETAMINE [Suspect]
     Active Substance: KETAMINE
     Indication: Product used for unknown indication

REACTIONS (4)
  - Respiratory failure [Unknown]
  - Somnolence [Unknown]
  - Hypotension [Unknown]
  - Respiratory depression [Unknown]
